FAERS Safety Report 5048811-6 (Version None)
Quarter: 2006Q3

REPORT INFORMATION
  Report Type: 
  Country: None (occurrence: None)
  Receive Date: 20060705
  Receipt Date: 20060619
  Transmission Date: 20061208
  Serious: Yes (Other)
  Sender: FDA-Public Use
  Company Number: DE200604004079

PATIENT
  Age: 54 Year
  Sex: Female

DRUGS (3)
  1. GEMZAR [Suspect]
     Indication: PANCREATIC CARCINOMA
     Dosage: 1000 MG/M2, INTRAVENOUS
     Route: 042
     Dates: start: 20060214, end: 20060101
  2. NEXIUM [Concomitant]
  3. KREON (PANCREATIN) [Concomitant]

REACTIONS (4)
  - CONDITION AGGRAVATED [None]
  - PANCYTOPENIA [None]
  - PARANEOPLASTIC SYNDROME [None]
  - SYSTEMIC LUPUS ERYTHEMATOSUS [None]
